FAERS Safety Report 7018437-3 (Version None)
Quarter: 2010Q3

REPORT INFORMATION
  Report Type: 
  Country: None (occurrence: None)
  Receive Date: 20100928
  Receipt Date: 20100915
  Transmission Date: 20110219
  Serious: Yes (Hospitalization)
  Sender: FDA-Public Use
  Company Number: US-SANOFI-AVENTIS-2010SA055944

PATIENT
  Age: 60 Year
  Sex: Male

DRUGS (3)
  1. LANTUS [Suspect]
     Indication: INSULIN-REQUIRING TYPE 2 DIABETES MELLITUS
     Dosage: DOSE:92 UNIT(S)
     Route: 058
  2. SOLOSTAR [Suspect]
     Indication: INSULIN-REQUIRING TYPE 2 DIABETES MELLITUS
  3. BLOOD THINNER [Suspect]

REACTIONS (5)
  - ARTHRALGIA [None]
  - CEREBRAL HAEMORRHAGE [None]
  - FEELING HOT [None]
  - MENINGITIS [None]
  - PAIN IN EXTREMITY [None]
